FAERS Safety Report 8204693-2 (Version None)
Quarter: 2012Q1

REPORT INFORMATION
  Report Type: 
  Country: None (occurrence: None)
  Receive Date: 20120313
  Receipt Date: 20120307
  Transmission Date: 20120608
  Serious: Yes (Death, Life-Threatening, Other)
  Sender: FDA-Public Use
  Company Number: JP-JNJFOC-20110800081

PATIENT
  Sex: Female
  Weight: 57 kg

DRUGS (41)
  1. DOXORUBICIN HCL [Suspect]
     Dosage: CYCLE 2
     Route: 042
     Dates: start: 20091217, end: 20091217
  2. LEUKOPROL [Concomitant]
     Dosage: 8 MIU
     Route: 041
     Dates: start: 20091217, end: 20091222
  3. UNASYN [Concomitant]
     Route: 042
     Dates: start: 20091221, end: 20091221
  4. CEPHARANTHINE [Concomitant]
     Indication: PROPHYLAXIS
     Route: 048
     Dates: end: 20091216
  5. ZANTAC [Concomitant]
     Indication: PROPHYLAXIS
     Route: 042
     Dates: end: 20091119
  6. CODEINE PHOSPHATE [Concomitant]
     Dosage: FINR GRAIN
     Route: 048
     Dates: start: 20091221, end: 20091225
  7. PRIMPERAN TAB [Concomitant]
     Route: 042
     Dates: start: 20091222, end: 20100105
  8. IMMUNE GLOBULIN INTRAVENOUS (HUMAN) [Concomitant]
     Route: 042
     Dates: start: 20091225, end: 20100103
  9. M.V.I. [Concomitant]
     Indication: PROPHYLAXIS
     Route: 041
     Dates: start: 20100102, end: 20100105
  10. HICALIQ [Concomitant]
     Indication: PROPHYLAXIS
     Route: 041
     Dates: start: 20100102, end: 20100105
  11. DEXAMETHASONE SODIUM PHOSPHATE [Concomitant]
     Indication: PROPHYLAXIS
     Route: 042
     Dates: start: 20091216, end: 20091216
  12. KYTRIL [Concomitant]
     Indication: PROPHYLAXIS
     Route: 041
  13. ALBUMIN (HUMAN) [Concomitant]
     Route: 042
     Dates: start: 20091121, end: 20091122
  14. LOXONIN [Concomitant]
     Route: 048
     Dates: start: 20091222, end: 20091230
  15. CIPROFLOXACIN HYDROCHLORIDE [Concomitant]
     Route: 042
     Dates: start: 20091230, end: 20100105
  16. HICORT [Concomitant]
     Route: 065
     Dates: start: 20091230, end: 20100105
  17. UNASYN [Concomitant]
     Route: 042
     Dates: start: 20091222, end: 20091224
  18. HOKUNALIN [Concomitant]
     Route: 062
     Dates: start: 20091221, end: 20100105
  19. FUNGIZONE [Concomitant]
     Route: 042
     Dates: start: 20091228, end: 20100105
  20. FUTHAN [Concomitant]
     Route: 042
     Dates: start: 20091229, end: 20100105
  21. TPN ELECTROLYTES IN PLASTIC CONTAINER [Concomitant]
     Indication: PROPHYLAXIS
     Route: 041
     Dates: start: 20091230, end: 20100103
  22. HEPARIN [Concomitant]
     Indication: PROPHYLAXIS
     Route: 061
     Dates: start: 20091216, end: 20091216
  23. MUCOSOLVAN [Concomitant]
     Route: 048
     Dates: start: 20091224, end: 20091230
  24. HUMULIN R [Concomitant]
     Indication: PROPHYLAXIS
     Dosage: 10 (DEGREE OF FREEDOM)
     Route: 058
     Dates: start: 20100103, end: 20100105
  25. MEROPENEM [Concomitant]
     Route: 041
     Dates: start: 20051225, end: 20100105
  26. LEVOFLOXACIN [Concomitant]
     Route: 048
     Dates: start: 20091221, end: 20091225
  27. CISPLATIN [Concomitant]
     Route: 042
     Dates: start: 20091224, end: 20091224
  28. VITAMEDIN [Concomitant]
     Indication: PROPHYLAXIS
     Route: 042
     Dates: start: 20091222, end: 20100103
  29. DOXORUBICIN HCL [Suspect]
     Indication: OVARIAN CANCER RECURRENT
     Dosage: CYCLE 1
     Route: 042
     Dates: start: 20091118, end: 20091118
  30. LAC-B [Concomitant]
     Indication: PROPHYLAXIS
     Route: 048
     Dates: end: 20091216
  31. UNKNOWN MEDICATION [Concomitant]
     Route: 058
     Dates: start: 20091224, end: 20091230
  32. MAGMITT [Concomitant]
     Route: 048
     Dates: end: 20091216
  33. ONDANSETRON [Concomitant]
     Indication: PROPHYLAXIS
     Route: 042
     Dates: start: 20091119, end: 20091120
  34. DEXTROMETHORPHAN HYDROBROMIDE [Concomitant]
     Route: 048
     Dates: start: 20091219, end: 20091223
  35. POTASSIUM CHLORIDE [Concomitant]
     Route: 042
     Dates: start: 20091229, end: 20100109
  36. AZUNOL [Concomitant]
     Route: 061
     Dates: start: 20091231, end: 20091231
  37. DEPAKENE [Concomitant]
     Route: 048
     Dates: end: 20100105
  38. JUZEN-TAIHO-TO [Concomitant]
     Indication: PROPHYLAXIS
     Route: 048
     Dates: end: 20091217
  39. KENACORT-A OPHTHALMIC OINTMENT [Concomitant]
     Route: 033
     Dates: start: 20091120, end: 20091120
  40. MORPHINE [Concomitant]
     Indication: PROPHYLAXIS
     Route: 042
     Dates: start: 20100103, end: 20100105
  41. HUMULIN R [Concomitant]
     Indication: HYPERGLYCAEMIA
     Dosage: 10 (DEGREE OF FREEDOM)
     Route: 058
     Dates: start: 20100103, end: 20100105

REACTIONS (4)
  - NEUTROPHIL COUNT DECREASED [None]
  - PLATELET COUNT DECREASED [None]
  - WHITE BLOOD CELL COUNT DECREASED [None]
  - PNEUMONIA [None]
